FAERS Safety Report 18157124 (Version 2)
Quarter: 2020Q3

REPORT INFORMATION
  Report Type: Spontaneous
  Country: US (occurrence: US)
  Receive Date: 20200817
  Receipt Date: 20200826
  Transmission Date: 20201103
  Serious: No
  Sender: FDA-Public Use
  Company Number: US-BIOGEN-2019BI00711317

PATIENT
  Age: 46 Year
  Sex: Female
  Weight: 90.8 kg

DRUGS (4)
  1. TECFIDERA [Suspect]
     Active Substance: DIMETHYL FUMARATE
     Route: 065
     Dates: start: 20170531
  2. TECFIDERA [Suspect]
     Active Substance: DIMETHYL FUMARATE
     Route: 048
     Dates: start: 20190310
  3. TECFIDERA [Suspect]
     Active Substance: DIMETHYL FUMARATE
     Indication: MULTIPLE SCLEROSIS
     Route: 048
     Dates: start: 20190303, end: 20190309
  4. TECFIDERA [Suspect]
     Active Substance: DIMETHYL FUMARATE
     Route: 065
     Dates: start: 20190206

REACTIONS (14)
  - Pain in extremity [Unknown]
  - Gastric disorder [Recovered/Resolved with Sequelae]
  - Flushing [Unknown]
  - Diarrhoea [Unknown]
  - Pruritus [Recovered/Resolved with Sequelae]
  - Gastrointestinal disorder [Unknown]
  - Flatulence [Recovered/Resolved with Sequelae]
  - Abdominal discomfort [Unknown]
  - Vomiting [Unknown]
  - Paraesthesia [Not Recovered/Not Resolved]
  - Product dose omission issue [Recovered/Resolved]
  - Illness [Unknown]
  - Decreased appetite [Not Recovered/Not Resolved]
  - Nausea [Recovered/Resolved with Sequelae]

NARRATIVE: CASE EVENT DATE: 20190303
